FAERS Safety Report 26132514 (Version 1)
Quarter: 2025Q4

REPORT INFORMATION
  Report Type: Spontaneous
  Country: CL (occurrence: CL)
  Receive Date: 20251208
  Receipt Date: 20251208
  Transmission Date: 20260118
  Serious: Yes (Other)
  Sender: BIOMARIN
  Company Number: CL-BIOMARINAP-CL-2025-170430

PATIENT
  Age: 18 Year
  Sex: Male

DRUGS (2)
  1. VIMIZIM [Suspect]
     Active Substance: ELOSULFASE ALFA
     Indication: Mucopolysaccharidosis IV
     Dosage: UNK
  2. VIMIZIM [Suspect]
     Active Substance: ELOSULFASE ALFA
     Dosage: UNK
     Dates: start: 20150415, end: 20230705

REACTIONS (1)
  - Joint dislocation [Not Recovered/Not Resolved]
